FAERS Safety Report 24237293 (Version 2)
Quarter: 2024Q3

REPORT INFORMATION
  Report Type: Spontaneous
  Country: GB (occurrence: GB)
  Receive Date: 20240822
  Receipt Date: 20240904
  Transmission Date: 20241017
  Serious: Yes (Disabling, Other)
  Sender: TEVA
  Company Number: GB-MHRA-MED-202305131225320690-RVSDL

PATIENT
  Sex: Female

DRUGS (1)
  1. FLUOXETINE [Suspect]
     Active Substance: FLUOXETINE HYDROCHLORIDE

REACTIONS (1)
  - Dependence [Not Recovered/Not Resolved]
